FAERS Safety Report 5032192-8 (Version None)
Quarter: 2006Q2

REPORT INFORMATION
  Report Type: 
  Country: None (occurrence: None)
  Receive Date: 20060619
  Receipt Date: 20060612
  Transmission Date: 20061013
  Serious: Yes (Death, Life-Threatening, Hospitalization, Disabling, Other)
  Sender: FDA-Public Use
  Company Number: US-2006-010534

PATIENT
  Age: 62 Year
  Sex: Male

DRUGS (20)
  1. CAMPATH [Suspect]
     Indication: CHRONIC LYMPHOCYTIC LEUKAEMIA
     Dosage: SEE IMAGE
     Route: 058
     Dates: start: 20060123, end: 20060127
  2. CAMPATH [Suspect]
     Indication: CHRONIC LYMPHOCYTIC LEUKAEMIA
     Dosage: SEE IMAGE
     Route: 058
     Dates: start: 20060221, end: 20060224
  3. CAMPATH [Suspect]
     Indication: CHRONIC LYMPHOCYTIC LEUKAEMIA
     Dosage: SEE IMAGE
     Route: 058
     Dates: start: 20060227, end: 20060227
  4. CAMPATH [Suspect]
     Indication: CHRONIC LYMPHOCYTIC LEUKAEMIA
     Dosage: SEE IMAGE
     Route: 058
     Dates: start: 20060327, end: 20060331
  5. FLUDARA [Suspect]
     Indication: CHRONIC LYMPHOCYTIC LEUKAEMIA
     Dosage: SEE IMAGE
     Route: 042
     Dates: start: 20060123, end: 20060127
  6. FLUDARA [Suspect]
     Indication: CHRONIC LYMPHOCYTIC LEUKAEMIA
     Dosage: SEE IMAGE
     Route: 042
     Dates: start: 20060221, end: 20060224
  7. FLUDARA [Suspect]
     Indication: CHRONIC LYMPHOCYTIC LEUKAEMIA
     Dosage: SEE IMAGE
     Route: 042
     Dates: start: 20060227, end: 20060227
  8. FLUDARA [Suspect]
     Indication: CHRONIC LYMPHOCYTIC LEUKAEMIA
     Dosage: SEE IMAGE
     Route: 042
     Dates: start: 20060327, end: 20060331
  9. SEPTRA DS [Concomitant]
  10. FAMIVIR (FAMCICLOVIR) [Concomitant]
  11. NEUPOGEN [Concomitant]
  12. MOTRIN [Concomitant]
  13. PROCRIT [Concomitant]
  14. KYTRIL [Concomitant]
  15. BENADRYL ^PFIZER WARNER-LAMBERT^ (DIPHENHYDRAMINE HYDROCHLORIDE) [Concomitant]
  16. TYLENOL (CAPLET) [Concomitant]
  17. LIPITOR  /NET/ (ATORVASTATIN CALCIUM) [Concomitant]
  18. ALLOPURINOL [Concomitant]
  19. LEVAQUIN (LEVOFLORXACIN) [Concomitant]
  20. DECADRON /CAN/ [Concomitant]

REACTIONS (20)
  - ASTHENIA [None]
  - BACK PAIN [None]
  - BONE PAIN [None]
  - DECREASED APPETITE [None]
  - DIZZINESS [None]
  - FATIGUE [None]
  - HEADACHE [None]
  - HYPOTENSION [None]
  - INFECTION [None]
  - INSOMNIA [None]
  - MUSCULOSKELETAL STIFFNESS [None]
  - MYELITIS [None]
  - NECK PAIN [None]
  - NEUROPATHY PERIPHERAL [None]
  - NEUROTOXICITY [None]
  - NEUTROPENIA [None]
  - PETECHIAE [None]
  - PYREXIA [None]
  - THROMBOCYTOPENIA [None]
  - URINARY INCONTINENCE [None]
